FAERS Safety Report 25303868 (Version 1)
Quarter: 2025Q2

REPORT INFORMATION
  Report Type: Spontaneous
  Country: JP (occurrence: JP)
  Receive Date: 20250513
  Receipt Date: 20250513
  Transmission Date: 20250717
  Serious: Yes (Death, Other)
  Sender: GENMAB
  Company Number: JP-GENMAB-2024-04884

PATIENT
  Age: 58 Year
  Sex: Female
  Weight: 34.3 kg

DRUGS (3)
  1. EPKINLY [Suspect]
     Active Substance: EPCORITAMAB-BYSP
     Indication: Diffuse large B-cell lymphoma refractory
     Route: 058
     Dates: start: 20240206, end: 20240206
  2. EPKINLY [Suspect]
     Active Substance: EPCORITAMAB-BYSP
     Route: 058
     Dates: start: 20240213, end: 20240213
  3. EPKINLY [Suspect]
     Active Substance: EPCORITAMAB-BYSP
     Route: 058
     Dates: start: 20240221, end: 20240718

REACTIONS (1)
  - Diffuse large B-cell lymphoma refractory [Fatal]

NARRATIVE: CASE EVENT DATE: 20240101
